FAERS Safety Report 10565655 (Version 1)
Quarter: 2014Q4

REPORT INFORMATION
  Report Type: Spontaneous
  Country: US (occurrence: None)
  Receive Date: 20141104
  Receipt Date: 20141104
  Transmission Date: 20150529
  Serious: No
  Sender: FDA-Public Use
  Company Number: None

PATIENT
  Age: 63 Year
  Sex: Male
  Weight: 108.86 kg

DRUGS (4)
  1. LISINOPRIL. [Concomitant]
     Active Substance: LISINOPRIL
  2. FENTANYL. [Concomitant]
     Active Substance: FENTANYL
  3. GABAPENTIN. [Suspect]
     Active Substance: GABAPENTIN
     Indication: PROCEDURAL PAIN
  4. GABAPENTIN. [Suspect]
     Active Substance: GABAPENTIN
     Indication: SURGERY

REACTIONS (2)
  - Pain [None]
  - Disease complication [None]

NARRATIVE: CASE EVENT DATE: 20140204
